FAERS Safety Report 9443241 (Version 2)
Quarter: 2013Q3

REPORT INFORMATION
  Report Type: Spontaneous
  Country: US (occurrence: US)
  Receive Date: 20130806
  Receipt Date: 20130819
  Transmission Date: 20140515
  Serious: Yes (Other)
  Sender: FDA-Public Use
  Company Number: US-GLAXOSMITHKLINE-A0992588A

PATIENT
  Age: 61 Year
  Sex: Male

DRUGS (11)
  1. ADVAIR [Suspect]
     Indication: CHRONIC OBSTRUCTIVE PULMONARY DISEASE
     Route: 055
     Dates: start: 20100504
  2. VENTOLIN [Suspect]
     Indication: PRODUCT USED FOR UNKNOWN INDICATION
     Dosage: 90MCG UNKNOWN
     Route: 065
     Dates: start: 20120711
  3. COREG CR [Suspect]
     Indication: PRODUCT USED FOR UNKNOWN INDICATION
     Dosage: 20MG UNKNOWN
     Route: 065
     Dates: start: 20100714
  4. LOVAZA [Suspect]
     Indication: PRODUCT USED FOR UNKNOWN INDICATION
     Dosage: 1G UNKNOWN
     Route: 065
     Dates: start: 20100430
  5. METFORMIN [Concomitant]
  6. PRAVASTATIN [Concomitant]
  7. PLAVIX [Concomitant]
  8. RAMIPRIL [Concomitant]
  9. COREG [Concomitant]
  10. ASPIRIN [Concomitant]
  11. GLIMEPIRIDE [Concomitant]

REACTIONS (14)
  - Diabetes mellitus [Unknown]
  - Joint stiffness [Unknown]
  - Arthralgia [Unknown]
  - Neuropathy peripheral [Unknown]
  - Cardiac disorder [Unknown]
  - Thyroid disorder [Unknown]
  - Stress [Unknown]
  - Abdominal pain upper [Unknown]
  - Malaise [Unknown]
  - Malaise [Not Recovered/Not Resolved]
  - Neuropathy peripheral [Not Recovered/Not Resolved]
  - Pain in extremity [Not Recovered/Not Resolved]
  - Dyspnoea [Not Recovered/Not Resolved]
  - Hyperthyroidism [Not Recovered/Not Resolved]
